FAERS Safety Report 11219716 (Version 1)
Quarter: 2015Q2

REPORT INFORMATION
  Report Type: Other
  Country: MX (occurrence: MX)
  Receive Date: 20150625
  Receipt Date: 20150625
  Transmission Date: 20150821
  Serious: Yes (Other)
  Sender: FDA-Public Use
  Company Number: MX-SHIRE-MX201506513

PATIENT
  Age: 14 Year
  Sex: Male
  Weight: 34 kg

DRUGS (1)
  1. ELAPRASE [Suspect]
     Active Substance: IDURSULFASE
     Indication: MUCOPOLYSACCHARIDOSIS II
     Dosage: 6 MG (1VIAL), 1X/WEEK
     Route: 041

REACTIONS (9)
  - Hernia [Unknown]
  - Gastrointestinal disorder [Unknown]
  - Dehydration [Recovering/Resolving]
  - Syncope [Recovering/Resolving]
  - Infusion related reaction [Recovering/Resolving]
  - Lung disorder [Unknown]
  - Oedema [Unknown]
  - Hypophagia [Recovering/Resolving]
  - Fatigue [Recovering/Resolving]

NARRATIVE: CASE EVENT DATE: 20150610
